FAERS Safety Report 7993940-8 (Version None)
Quarter: 2011Q4

REPORT INFORMATION
  Report Type: 
  Country: None (occurrence: None)
  Receive Date: 20111215
  Receipt Date: 20111213
  Transmission Date: 20120403
  Serious: Yes (Hospitalization)
  Sender: FDA-Public Use
  Company Number: 021865

PATIENT
  Age: 73 Year
  Sex: Male
  Weight: 52.4 kg

DRUGS (28)
  1. NOVOLOG [Concomitant]
  2. TRIMEBUTINE MALEATE (TRIMEBUTINE MALEATE) [Concomitant]
  3. TAMSULOSIN HCL [Concomitant]
  4. MYSER (DIFLUPREDNATE) [Concomitant]
  5. TASMOLIN (BIPERIDEN) [Concomitant]
  6. SULPIRIDE (SULPIRIDE) [Concomitant]
  7. DEZOLAM (ETIZOLAM) [Concomitant]
  8. EPALRESTAT (EPALRESTAT) [Concomitant]
  9. REMERON [Concomitant]
  10. BONALFA (TACALCITOL) [Concomitant]
  11. MEILAX (ETHYL LOFLAZEPATE) [Concomitant]
  12. DIHYDERGOT (DIHYDROERGOTAMINE MESILATE) [Concomitant]
  13. EXCELASE (ENZYMES NOS) [Concomitant]
  14. LEVEMIR [Concomitant]
  15. TRAZODONE HCL [Concomitant]
  16. AZULENE SULFONATE SODIUM/L-GLUTAMINE (AZULENE SODIUM SULFONATE, L-ALAN [Concomitant]
  17. BONALFA (TACALCITOL) [Concomitant]
  18. ZOLPIDEM TARTRATE [Concomitant]
  19. VOGLIBOSE (VOGLIBOSE) [Concomitant]
  20. LANSOPRAZOLE [Concomitant]
  21. ENSURE (AMINO ACIDS , MINERALS , VITAMINS ) [Concomitant]
  22. PEGAPTANIB SODIUM;PLACEBO (CODE NOT BROKEN) UNKNOWN [Suspect]
     Indication: DIABETIC RETINAL OEDEMA
     Dates: start: 20101006, end: 20110909
  23. ZOLOFT [Concomitant]
  24. ALPRAZOLAM [Concomitant]
  25. SODIUM BICARBONATE IN PLASTIC CONTAINER [Concomitant]
  26. MAGNESIUM OXIDE (MAGNESIUM OXIDE) [Concomitant]
  27. DIFLUPREDNATE (DIFLUPREDNATE) [Concomitant]
  28. VITAMEDIN CAPSULE (BENFOTIAMINE, CYANOCOBALAMIN, PYRIDOXINE HYDROCHLOR [Concomitant]

REACTIONS (2)
  - CONDITION AGGRAVATED [None]
  - CATARACT [None]
